FAERS Safety Report 8533640-9 (Version None)
Quarter: 2012Q3

REPORT INFORMATION
  Report Type: 
  Country: None (occurrence: None)
  Receive Date: 20120724
  Receipt Date: 20120714
  Transmission Date: 20120928
  Serious: Yes (Hospitalization, Other)
  Sender: FDA-Public Use
  Company Number: US-VERTEX PHARMACEUTICALS INC.-AE-2012-006565

PATIENT
  Age: 50 Year
  Sex: Male
  Weight: 69.008 kg

DRUGS (10)
  1. RANITIDINE [Concomitant]
     Route: 048
  2. PEGASYS [Concomitant]
     Dates: start: 20120305, end: 20120416
  3. INCIVEK [Suspect]
     Indication: HEPATITIS C
     Route: 048
     Dates: start: 20120213, end: 20120330
  4. RIBAVIRIN [Concomitant]
     Dates: start: 20120404, end: 20120416
  5. LORAZEPAM [Concomitant]
     Indication: ANXIETY
     Route: 048
  6. OXYCODONE HCL [Concomitant]
     Route: 048
  7. PEGASYS [Concomitant]
     Indication: HEPATITIS C
     Dates: start: 20120213, end: 20120305
  8. RIBAVIRIN [Concomitant]
     Indication: HEPATITIS C
     Route: 048
     Dates: start: 20120213, end: 20120404
  9. OMEPRAZOLE [Concomitant]
     Route: 048
  10. LASIX [Concomitant]
     Route: 048

REACTIONS (3)
  - SUPERINFECTION BACTERIAL [None]
  - DRUG RASH WITH EOSINOPHILIA AND SYSTEMIC SYMPTOMS [None]
  - THROMBOCYTOPENIA [None]
